FAERS Safety Report 9353363 (Version 2)
Quarter: 2013Q4

REPORT INFORMATION
  Report Type: Spontaneous
  Country: US (occurrence: US)
  Receive Date: 20130618
  Receipt Date: 20131004
  Transmission Date: 20140711
  Serious: Yes (Congenital Anomaly, Other)
  Sender: FDA-Public Use
  Company Number: US-PFIZER INC-2013179491

PATIENT
  Sex: Male

DRUGS (3)
  1. ZOLOFT [Suspect]
     Dosage: UNK
     Route: 064
  2. PRENATAL VITAMINS [Concomitant]
     Dosage: UNK
     Route: 064
  3. PROMETHAZINE [Concomitant]
     Dosage: UNK
     Route: 064

REACTIONS (12)
  - Maternal exposure during pregnancy [Unknown]
  - Cerebral haemorrhage neonatal [Unknown]
  - Duodenal atresia [Unknown]
  - Tracheo-oesophageal fistula [Unknown]
  - Oesophageal atresia [Unknown]
  - Congenital tracheomalacia [Unknown]
  - Congenital bronchomalacia [Unknown]
  - Sepsis neonatal [Unknown]
  - Congenital anomaly [Unknown]
  - Serratia infection [Unknown]
  - Staphylococcal infection [Unknown]
  - Premature baby [Unknown]
